FAERS Safety Report 5339063-8 (Version None)
Quarter: 2007Q2

REPORT INFORMATION
  Report Type: 
  Country: None (occurrence: None)
  Receive Date: 20070530
  Receipt Date: 20070518
  Transmission Date: 20071010
  Serious: Yes (Other)
  Sender: FDA-Public Use
  Company Number: US-PFIZER INC-2007031753

PATIENT
  Sex: Male
  Weight: 68 kg

DRUGS (10)
  1. LYRICA [Suspect]
     Indication: NEURALGIA
     Route: 048
     Dates: start: 20070101
  2. LYRICA [Suspect]
     Indication: BURNING SENSATION
  3. LYRICA [Suspect]
     Indication: HERPES ZOSTER
  4. PLAVIX [Concomitant]
  5. ACETYLSALICYLIC ACID SRT [Concomitant]
  6. FOLIC ACID [Concomitant]
  7. LISINOPRIL [Concomitant]
  8. ISOSORBIDE DINITRATE [Concomitant]
  9. HYDROCODONE BITARTRATE [Concomitant]
     Indication: PAIN
  10. SIMVASTATIN [Concomitant]

REACTIONS (3)
  - DRUG INEFFECTIVE [None]
  - EYE DISORDER [None]
  - MEMORY IMPAIRMENT [None]
